FAERS Safety Report 8259363-1 (Version None)
Quarter: 2012Q2

REPORT INFORMATION
  Report Type: 
  Country: None (occurrence: None)
  Receive Date: 20120404
  Receipt Date: 20120327
  Transmission Date: 20120825
  Serious: Yes (Hospitalization, Other)
  Sender: FDA-Public Use
  Company Number: US-BAYER-2011-096756

PATIENT
  Age: 46 Year
  Sex: Female
  Weight: 104.76 kg

DRUGS (7)
  1. SERTRALINE HYDROCHLORIDE [Concomitant]
     Dosage: 100 MG, UNK
     Dates: start: 20061117
  2. OXYCODONE HCL AND ACETAMINOPHEN [Concomitant]
     Dosage: 5-325 MG
     Dates: start: 20061117
  3. LORAZEPAM [Concomitant]
     Dosage: 1 MG, UNK
     Dates: start: 20061212
  4. AZITHROMYCIN [Concomitant]
     Dosage: UNK
     Dates: start: 20070120
  5. YAZ [Suspect]
     Dosage: UNK
     Dates: start: 20061017, end: 20070501
  6. DUKE'S MAGIC MOUTHWASH [Concomitant]
     Dosage: UNK
     Dates: start: 20061211
  7. ORPHENADRINE CITRATE [Concomitant]
     Dosage: UNK
     Dates: start: 20061117

REACTIONS (10)
  - SCAR [None]
  - CHOLELITHIASIS OBSTRUCTIVE [None]
  - GENERAL PHYSICAL HEALTH DETERIORATION [None]
  - EMOTIONAL DISTRESS [None]
  - PAIN [None]
  - GALLBLADDER CHOLESTEROLOSIS [None]
  - INJURY [None]
  - ANXIETY [None]
  - GALLBLADDER INJURY [None]
  - CHOLECYSTITIS CHRONIC [None]
